FAERS Safety Report 18694918 (Version 1)
Quarter: 2021Q1

REPORT INFORMATION
  Report Type: Spontaneous
  Country: US (occurrence: US)
  Receive Date: 20210102
  Receipt Date: 20210102
  Transmission Date: 20210419
  Serious: Yes (Death)
  Sender: FDA-Public Use
  Company Number: None

PATIENT
  Age: 89 Year
  Sex: Male

DRUGS (2)
  1. LUPRON DEPOT [Suspect]
     Active Substance: LEUPROLIDE ACETATE
     Indication: PROSTATE CANCER
     Dosage: ?          OTHER FREQUENCY:EVERY 3 MONTHS;?
     Route: 030
     Dates: start: 20200709
  2. XGEVA [Suspect]
     Active Substance: DENOSUMAB
     Indication: PROSTATE CANCER
     Dosage: ?          OTHER DOSE:1 VIAL;OTHER FREQUENCY:EVERY 28 DAYS;?
     Route: 058
     Dates: start: 20200709

REACTIONS (1)
  - Death [None]

NARRATIVE: CASE EVENT DATE: 20201231
